FAERS Safety Report 5236226-7 (Version None)
Quarter: 2007Q1

REPORT INFORMATION
  Report Type: 
  Country: None (occurrence: None)
  Receive Date: 20070212
  Receipt Date: 20070206
  Transmission Date: 20070707
  Serious: Yes (Other)
  Sender: FDA-Public Use
  Company Number: US-PFIZER INC-2006153950

PATIENT
  Sex: Male
  Weight: 83.9 kg

DRUGS (8)
  1. CELEBREX [Suspect]
     Indication: ARTHRITIS
     Dates: start: 20061207, end: 20061210
  2. CELEBREX [Suspect]
     Indication: INTERVERTEBRAL DISC PROTRUSION
  3. CELEBREX [Suspect]
     Indication: CERVICOBRACHIAL SYNDROME
  4. ASPIRIN [Concomitant]
     Dosage: DAILY DOSE:81MG
  5. PROCARDIA [Concomitant]
  6. VALSARTAN [Concomitant]
  7. ATIVAN [Concomitant]
  8. ALBUTEROL [Concomitant]

REACTIONS (2)
  - EYE SWELLING [None]
  - HYPERSENSITIVITY [None]
